FAERS Safety Report 19952351 (Version 2)
Quarter: 2021Q4

REPORT INFORMATION
  Report Type: Spontaneous
  Country: US (occurrence: None)
  Receive Date: 20211014
  Receipt Date: 20211111
  Transmission Date: 20220303
  Serious: Yes (Hospitalization)
  Sender: FDA-Public Use
  Company Number: US-ROCHE-2927544

PATIENT
  Sex: Female

DRUGS (11)
  1. ESBRIET [Suspect]
     Active Substance: PIRFENIDONE
     Indication: Idiopathic pulmonary fibrosis
     Dosage: ONGOING : NO, 1 TABLET TID WITH FOOD
     Route: 048
     Dates: start: 202106, end: 202109
  2. ESBRIET [Suspect]
     Active Substance: PIRFENIDONE
     Indication: Interstitial lung disease
     Dosage: 1 TABLET WITH FOOD.
     Route: 048
     Dates: start: 20210608, end: 20211008
  3. ESBRIET [Suspect]
     Active Substance: PIRFENIDONE
     Route: 048
  4. BONIVA [Suspect]
     Active Substance: IBANDRONATE SODIUM
     Indication: Product used for unknown indication
     Route: 065
  5. ALBUTEROL SULFATE [Concomitant]
     Active Substance: ALBUTEROL SULFATE
     Dosage: NEB (5MG/ML
  6. LEVAQUIN [Concomitant]
     Active Substance: LEVOFLOXACIN
  7. MEDROL [Concomitant]
     Active Substance: METHYLPREDNISOLONE
  8. BONIVA [Concomitant]
     Active Substance: IBANDRONATE SODIUM
  9. CRESTOR [Concomitant]
     Active Substance: ROSUVASTATIN CALCIUM
  10. VITAMINS [Concomitant]
     Active Substance: VITAMINS
  11. CHOLECALCIFEROL [Concomitant]
     Active Substance: CHOLECALCIFEROL

REACTIONS (6)
  - Eosinophilic pneumonia [Recovered/Resolved]
  - Hypoxia [Not Recovered/Not Resolved]
  - Pulmonary eosinophilia [Unknown]
  - Cough [Not Recovered/Not Resolved]
  - Oxygen saturation decreased [Not Recovered/Not Resolved]
  - Pulmonary eosinophilia [Not Recovered/Not Resolved]
